FAERS Safety Report 4505231-8 (Version None)
Quarter: 2004Q4

REPORT INFORMATION
  Report Type: 
  Country: None (occurrence: None)
  Receive Date: 20041015
  Receipt Date: 20040812
  Transmission Date: 20050328
  Serious: Yes (Other)
  Sender: FDA-Public Use
  Company Number: 2004042631

PATIENT
  Sex: Male
  Weight: 83.9154 kg

DRUGS (5)
  1. NEURONTIN [Suspect]
     Indication: FIBROMYALGIA
  2. CELECOXIB (CELECOXIB) [Concomitant]
  3. VICODIN [Concomitant]
  4. AMITRIPTYLINE (AMITRIPTYLINE (AMITRIPTYLINE) [Concomitant]
  5. CYCLOBENZAPRINE (CYCLOBENZAPRINE) [Concomitant]

REACTIONS (1)
  - CONVULSION [None]
